FAERS Safety Report 23730444 (Version 1)
Quarter: 2024Q2

REPORT INFORMATION
  Report Type: Report from Study
  Country: FI (occurrence: FI)
  Receive Date: 20240411
  Receipt Date: 20240411
  Transmission Date: 20240716
  Serious: Yes (Hospitalization, Other)
  Sender: FDA-Public Use
  Company Number: FI-MYLANLABS-2024M1025025

PATIENT
  Age: 88 Year
  Sex: Female

DRUGS (11)
  1. PANTOPRAZOLE [Suspect]
     Active Substance: PANTOPRAZOLE
     Dosage: 20 MILLIGRAM, QD
     Route: 048
  2. CALCIUM CARBONATE\CHOLECALCIFEROL [Suspect]
     Active Substance: CALCIUM CARBONATE\CHOLECALCIFEROL
     Dosage: 2 DOSAGE FORM, QD
     Route: 048
  3. CLOZAPINE [Suspect]
     Active Substance: CLOZAPINE
     Indication: Delusional disorder, unspecified type
     Dosage: 150 MILLIGRAM, QD
     Route: 065
     Dates: start: 20231214, end: 20240312
  4. ACETAMINOPHEN [Suspect]
     Active Substance: ACETAMINOPHEN
     Dosage: 500 MILLIGRAM, QD
     Route: 048
  5. ATORVASTATIN [Suspect]
     Active Substance: ATORVASTATIN
     Dosage: 80 MILLIGRAM, QD
     Route: 048
  6. WARFARIN SODIUM [Concomitant]
     Active Substance: WARFARIN SODIUM
     Indication: Pulmonary embolism
     Dosage: UNK UNK, 1X/DAY
     Route: 048
  7. MULTIVITA PLUS [Concomitant]
     Dosage: 1 DOSAGE FORM, QD
     Route: 048
  8. OXAZEPAM [Concomitant]
     Active Substance: OXAZEPAM
     Dosage: 7.5 MILLIGRAM, QD
     Route: 048
  9. MELATONIN [Concomitant]
     Active Substance: MELATONIN
     Dosage: 3 MILLIGRAM, QD
     Route: 048
  10. FLUTICASONE [Concomitant]
     Active Substance: FLUTICASONE
     Dosage: 250 MICROGRAM, QD
     Route: 050
  11. ESTRADIOL [Concomitant]
     Active Substance: ESTRADIOL
     Dosage: 10 MICROGRAM, 2/WEEK
     Route: 067

REACTIONS (4)
  - Psychotic disorder [Not Recovered/Not Resolved]
  - Neutropenia [Recovering/Resolving]
  - White blood cell count decreased [Recovering/Resolving]
  - C-reactive protein decreased [Unknown]

NARRATIVE: CASE EVENT DATE: 20240301
